FAERS Safety Report 15121299 (Version 1)
Quarter: 2018Q3

REPORT INFORMATION
  Report Type: Spontaneous
  Country: US (occurrence: US)
  Receive Date: 20180709
  Receipt Date: 20180709
  Transmission Date: 20181010
  Serious: No
  Sender: FDA-Public Use
  Company Number: US-EPIC PHARMA LLC-2018EPC00224

PATIENT
  Age: 44 Year
  Sex: Male
  Weight: 98.87 kg

DRUGS (4)
  1. OXYCODONE HYDROCHLORIDE. [Suspect]
     Active Substance: OXYCODONE HYDROCHLORIDE
     Indication: BACK PAIN
     Dosage: 30 MG, 2?3 TIMES PER DAY AS NEEDED
     Route: 048
     Dates: start: 20180412
  2. UNSPECIFIED CHOLESTEROL MEDICATION [Concomitant]
     Active Substance: UNSPECIFIED INGREDIENT
  3. ASPIRIN. [Concomitant]
     Active Substance: ASPIRIN
  4. UNSPECIFIED HEART MEDICINE [Concomitant]

REACTIONS (4)
  - Headache [Recovered/Resolved]
  - Product substitution issue [Not Recovered/Not Resolved]
  - Drug effect incomplete [Not Recovered/Not Resolved]
  - Dyspepsia [Recovered/Resolved]

NARRATIVE: CASE EVENT DATE: 20180412
